FAERS Safety Report 23746490 (Version 5)
Quarter: 2024Q3

REPORT INFORMATION
  Report Type: Spontaneous
  Country: US (occurrence: US)
  Receive Date: 20240416
  Receipt Date: 20240902
  Transmission Date: 20241017
  Serious: Yes (Hospitalization, Other)
  Sender: VIIV
  Company Number: US-VIIV HEALTHCARE LIMITED-US2024045535

PATIENT

DRUGS (3)
  1. VOCABRIA [Suspect]
     Active Substance: CABOTEGRAVIR SODIUM
     Indication: Prophylaxis against HIV infection
     Dosage: 30 MG
     Route: 048
     Dates: start: 202401, end: 20240213
  2. EMTRICITABINE\TENOFOVIR DISOPROXIL FUMARATE [Suspect]
     Active Substance: EMTRICITABINE\TENOFOVIR DISOPROXIL FUMARATE
     Indication: Product used for unknown indication
     Dosage: UNK
  3. ESTRADIOL [Suspect]
     Active Substance: ESTRADIOL
     Indication: Product used for unknown indication
     Dosage: UNK
     Dates: start: 202305

REACTIONS (33)
  - Stevens-Johnson syndrome [Recovering/Resolving]
  - Toxic epidermal necrolysis [Recovering/Resolving]
  - Oral disorder [Not Recovered/Not Resolved]
  - Skin exfoliation [Recovering/Resolving]
  - Staphylococcal bacteraemia [Unknown]
  - Periorbital oedema [Unknown]
  - Blister [Recovering/Resolving]
  - Visual impairment [Unknown]
  - Epidermal necrosis [Recovering/Resolving]
  - Dermatitis bullous [Recovering/Resolving]
  - Sepsis [Unknown]
  - Liver function test increased [Unknown]
  - Stomatitis [Unknown]
  - Eye swelling [Unknown]
  - Lip swelling [Unknown]
  - Skin erosion [Recovering/Resolving]
  - Speech disorder [Unknown]
  - Oral mucosal blistering [Unknown]
  - Lip blister [Unknown]
  - Salivary hypersecretion [Unknown]
  - Superficial injury of eye [Unknown]
  - Wound [Unknown]
  - Hepatic enzyme increased [Unknown]
  - Lip ulceration [Unknown]
  - Tongue ulceration [Unknown]
  - Mouth ulceration [Unknown]
  - Rash [Recovering/Resolving]
  - Pyrexia [Unknown]
  - Tachycardia [Unknown]
  - Nikolsky^s sign [Recovering/Resolving]
  - Anaemia [Unknown]
  - Genital rash [Unknown]
  - Erythema [Recovering/Resolving]

NARRATIVE: CASE EVENT DATE: 20240210
